FAERS Safety Report 5028577-6 (Version None)
Quarter: 2006Q2

REPORT INFORMATION
  Report Type: 
  Country: None (occurrence: None)
  Receive Date: 20060616
  Receipt Date: 20060616
  Transmission Date: 20061013
  Serious: Yes (Hospitalization)
  Sender: FDA-Public Use
  Company Number: None

PATIENT
  Age: 59 Year
  Sex: Male
  Weight: 75.3 kg

DRUGS (1)
  1. OXALIPLATIN [Suspect]
     Indication: PANCREATIC CARCINOMA METASTATIC
     Dosage: 168 MG (85 MH/M2@1.98 M2) IN 1000 ML D5W OVER 4 HRS
     Dates: start: 20060516

REACTIONS (5)
  - COUGH [None]
  - DRUG TOXICITY [None]
  - ERYTHEMA [None]
  - HYPERTENSION [None]
  - THROAT TIGHTNESS [None]
